FAERS Safety Report 4698356-8 (Version None)
Quarter: 2005Q2

REPORT INFORMATION
  Report Type: 
  Country: None (occurrence: None)
  Receive Date: 20050621
  Receipt Date: 20050608
  Transmission Date: 20051028
  Serious: Yes (Death)
  Sender: FDA-Public Use
  Company Number: 8009274

PATIENT
  Sex: Male

DRUGS (2)
  1. KEPPRA [Suspect]
  2. UNSPECIFIED ANTIEPILEPTIC DRUG [Suspect]

REACTIONS (1)
  - HYPOTHERMIA [None]
